FAERS Safety Report 6237863-3 (Version None)
Quarter: 2009Q2

REPORT INFORMATION
  Report Type: 
  Country: None (occurrence: None)
  Receive Date: 20090617
  Receipt Date: 20090601
  Transmission Date: 20091009
  Serious: Yes (Death, Hospitalization)
  Sender: FDA-Public Use
  Company Number: 2009RR-24757

PATIENT
  Age: 87 Year
  Sex: Female

DRUGS (15)
  1. MAGNASPOR (CEFUROXIME) INJECTION, 750MG [Suspect]
     Dosage: 750 MG, TID, INTRAVENOUS
     Route: 042
     Dates: start: 20050823, end: 20050830
  2. CIPROFLOXACIN [Suspect]
     Dosage: 500 MG, BID, ORAL
     Route: 048
     Dates: start: 20050915, end: 20050922
  3. LANSOPRAZOLE [Suspect]
     Dosage: 30 MG, BID, ORAL
     Route: 048
     Dates: start: 20050816, end: 20050920
  4. ASPIRIN [Concomitant]
  5. CITALOPRAM HYDROBROMIDE [Concomitant]
  6. CO-AMILOFRUSE (AMILORIDE HYDROCHLORIDE; FRUSEMIDE.) [Concomitant]
  7. CODEINE PHOSPHATE AND ACETAMINOPHEN [Concomitant]
  8. DILTIAZEM [Concomitant]
  9. FLUCONAZOLE [Concomitant]
  10. IPRATROPIUM BROMIDE [Concomitant]
  11. ISOSORBIDE MONONITRATE [Concomitant]
  12. SANDO-K (POTASSIUM BICARBONATE; POTASSIUM CHLORIDE) [Concomitant]
  13. SERETIDE (FLUTICASONE PROPIONATE MICRONISED; SALMETEROL XINAFOATE MICR [Concomitant]
  14. SODIUM BICARBONATE IN PLASTIC CONTAINER [Concomitant]
  15. TIOTROPIUM BROMIDE (TIOTROPIUM BROMIDE) [Concomitant]

REACTIONS (7)
  - CLOSTRIDIAL INFECTION [None]
  - FLANK PAIN [None]
  - GENERAL PHYSICAL HEALTH DETERIORATION [None]
  - INTESTINAL ISCHAEMIA [None]
  - LOWER RESPIRATORY TRACT INFECTION [None]
  - PERITONITIS [None]
  - URINARY TRACT INFECTION [None]
